FAERS Safety Report 23665105 (Version 1)
Quarter: 2024Q1

REPORT INFORMATION
  Report Type: Spontaneous
  Country: FR (occurrence: FR)
  Receive Date: 20240322
  Receipt Date: 20240322
  Transmission Date: 20240410
  Serious: Yes (Hospitalization)
  Sender: FDA-Public Use
  Company Number: None

PATIENT
  Age: 39 Year
  Sex: Male

DRUGS (13)
  1. ALLOPURINOL [Suspect]
     Active Substance: ALLOPURINOL
     Indication: Cytokine release syndrome
     Dosage: 300.000MG QD
     Route: 048
     Dates: start: 20240223, end: 20240301
  2. ATOVAQUONE [Suspect]
     Active Substance: ATOVAQUONE
     Indication: Antifungal prophylaxis
     Dosage: 1500.000MG QD
     Route: 048
     Dates: start: 20240227, end: 20240229
  3. DEXAMETHASONE [Suspect]
     Active Substance: DEXAMETHASONE
     Indication: Angiocentric lymphoma
     Dosage: 40.000MG QD
     Route: 048
     Dates: start: 20240227, end: 20240228
  4. IVERMECTIN [Suspect]
     Active Substance: IVERMECTIN
     Indication: Parasitic infection prophylaxis
     Dosage: 12.000MG
     Route: 048
     Dates: start: 20240226, end: 20240226
  5. METHOTREXATE [Suspect]
     Active Substance: METHOTREXATE
     Indication: Angiocentric lymphoma
     Dosage: 4100.000MG
     Route: 042
     Dates: start: 20240227, end: 20240227
  6. ONCASPAR [Suspect]
     Active Substance: PEGASPARGASE
     Indication: Angiocentric lymphoma
     Dosage: 3600.000DF
     Route: 042
     Dates: start: 20240228, end: 20240228
  7. OXALIPLATIN [Suspect]
     Active Substance: OXALIPLATIN
     Indication: Angiocentric lymphoma
     Dosage: 235.000MG
     Route: 042
     Dates: start: 20240228, end: 20240228
  8. VALACYCLOVIR HYDROCHLORIDE [Suspect]
     Active Substance: VALACYCLOVIR HYDROCHLORIDE
     Indication: Antiviral prophylaxis
     Dosage: 1000.000MG QD
     Route: 048
     Dates: start: 20240227, end: 20240229
  9. VIREAD [Suspect]
     Active Substance: TENOFOVIR DISOPROXIL FUMARATE
     Indication: Hepatitis B virus test positive
     Dosage: 245.000MG QD
     Route: 048
     Dates: start: 20240226, end: 20240301
  10. FOLIC ACID [Concomitant]
     Active Substance: FOLIC ACID
     Indication: Product used for unknown indication
     Dosage: 5.000MG QD
     Route: 048
     Dates: start: 20240227
  11. GEMCITABINE [Concomitant]
     Active Substance: GEMCITABINE
     Indication: Product used for unknown indication
     Dosage: 820.000MG
     Route: 042
     Dates: start: 20240227, end: 20240227
  12. LOVENOX [Concomitant]
     Active Substance: ENOXAPARIN SODIUM
     Indication: Product used for unknown indication
     Dosage: 1.000DF QD
     Route: 058
     Dates: start: 20240226
  13. ONDANSETRON [Concomitant]
     Active Substance: ONDANSETRON
     Indication: Product used for unknown indication
     Dosage: 16.000MG QD
     Route: 042
     Dates: start: 20240227

REACTIONS (1)
  - Hepatic cytolysis [Recovered/Resolved]

NARRATIVE: CASE EVENT DATE: 20240229
